FAERS Safety Report 10016856 (Version 2)
Quarter: 2014Q1

REPORT INFORMATION
  Report Type: Spontaneous
  Country: ES (occurrence: ES)
  Receive Date: 20140318
  Receipt Date: 20140319
  Transmission Date: 20141002
  Serious: Yes (Death)
  Sender: FDA-Public Use
  Company Number: ES-PFIZER INC-2014077610

PATIENT
  Age: 75 Year
  Sex: Male

DRUGS (13)
  1. PRISTIQ [Suspect]
     Indication: ANXIETY
     Dosage: 50 MG, 1X/DAY
     Route: 048
     Dates: start: 20140117, end: 20140210
  2. OMEPRAZOLE [Concomitant]
     Dosage: 20 MG, 1X/DAY
     Route: 048
     Dates: end: 20140210
  3. ADROVANCE [Concomitant]
     Dosage: 1 DF (ALENDRONATE SODIUM 70 MG/ COLECALCIFEROL 5600IU), WEEKLY
     Route: 048
     Dates: end: 20140210
  4. ISCOVER [Concomitant]
     Dosage: 75 MG, 1X/DAY
     Route: 048
     Dates: end: 20140210
  5. NITROPLAST [Concomitant]
     Dosage: 5 MG, 1X/DAY
     Route: 048
     Dates: end: 20140210
  6. ORFIDAL [Concomitant]
     Indication: ANXIETY
     Dosage: 1 MG, 2X/DAY
     Route: 048
     Dates: start: 20140117, end: 20140210
  7. RENITEC [Concomitant]
     Dosage: 5 MG, 1X/DAY
     Route: 048
     Dates: end: 20140210
  8. SEGURIL [Concomitant]
     Dosage: 40 MG, 2X/DAY
     Route: 048
     Dates: end: 20140210
  9. SERETIDE ACCUHALER [Concomitant]
     Dosage: 1 DF, 2X/DAY
     Route: 055
     Dates: end: 20140210
  10. SINGULAIR [Concomitant]
     Dosage: 10 MG, 1X/DAY
     Route: 048
     Dates: end: 20140210
  11. CALCIUM W/VITAMIN D NOS [Concomitant]
     Dosage: UNK
     Route: 048
     Dates: end: 20140210
  12. ZYLORIC [Concomitant]
     Dosage: 100 MG, 1X/DAY
     Route: 048
     Dates: end: 20140210
  13. LIVALO [Concomitant]
     Dosage: 2 MG, 1X/DAY
     Route: 048
     Dates: end: 20140210

REACTIONS (2)
  - Acute hepatic failure [Fatal]
  - Oliguria [Fatal]
